FAERS Safety Report 15423093 (Version 1)
Quarter: 2018Q3

REPORT INFORMATION
  Report Type: Spontaneous
  Country: AT (occurrence: AT)
  Receive Date: 20180925
  Receipt Date: 20180925
  Transmission Date: 20181010
  Serious: Yes (Other)
  Sender: FDA-Public Use
  Company Number: AT-TEVA-2018-AU-955005

PATIENT
  Age: 44 Year

DRUGS (8)
  1. L?DOPA WITH ENTACAPONE [Concomitant]
     Indication: PARKINSON^S DISEASE
  2. AMANTADINE. [Concomitant]
     Active Substance: AMANTADINE HYDROCHLORIDE
     Indication: PARKINSON^S DISEASE
  3. DOMPERIDONE [Concomitant]
     Active Substance: DOMPERIDONE
     Indication: PROPHYLAXIS
  4. ROPINIROLE. [Suspect]
     Active Substance: ROPINIROLE
     Indication: PARKINSON^S DISEASE
     Route: 065
  5. RASAGILINE MESILATE [Suspect]
     Active Substance: RASAGILINE MESYLATE
     Indication: PARKINSON^S DISEASE
     Route: 065
  6. ROTIGOTINE  PATCH [Concomitant]
     Indication: PARKINSON^S DISEASE
     Dosage: 24 MILLIGRAM DAILY;
  7. SOLUBLE L?DOPA [Concomitant]
     Indication: PARKINSON^S DISEASE
     Dosage: 24 MILLIGRAM DAILY;
  8. APOMORPHIN [Concomitant]
     Active Substance: APOMORPHINE HYDROCHLORIDE
     Indication: PARKINSON^S DISEASE

REACTIONS (7)
  - Anxiety [Unknown]
  - Middle insomnia [Unknown]
  - Depression [Unknown]
  - Gait inability [Unknown]
  - Gambling disorder [Unknown]
  - On and off phenomenon [Unknown]
  - Muscle spasms [Unknown]
